FAERS Safety Report 23366119 (Version 2)
Quarter: 2024Q1

REPORT INFORMATION
  Report Type: Spontaneous
  Country: US (occurrence: US)
  Receive Date: 20240104
  Receipt Date: 20240129
  Transmission Date: 20240409
  Serious: No
  Sender: FDA-Public Use
  Company Number: US-MIRATI-MT2023PM04649

PATIENT

DRUGS (12)
  1. KRAZATI [Suspect]
     Active Substance: ADAGRASIB
     Indication: Colon cancer
     Dosage: 600 MG, BID
     Route: 048
     Dates: start: 202307
  2. KRAZATI [Suspect]
     Active Substance: ADAGRASIB
     Indication: Abdominal neoplasm
     Dosage: 600 MG, BID
     Route: 048
     Dates: start: 20230814, end: 20230902
  3. KRAZATI [Suspect]
     Active Substance: ADAGRASIB
     Dosage: 600 MG, BID
     Route: 048
     Dates: start: 20230904
  4. KRAZATI [Suspect]
     Active Substance: ADAGRASIB
     Dosage: 400 MG, BID
     Route: 048
     Dates: start: 202310
  5. KRAZATI [Suspect]
     Active Substance: ADAGRASIB
     Dosage: 400 MG, BID
     Route: 048
     Dates: start: 202312, end: 20240101
  6. ELIQUIS [Concomitant]
     Active Substance: APIXABAN
     Indication: Atrial fibrillation
     Dosage: 5 MG TABLET
     Route: 048
  7. ELIQUIS [Concomitant]
     Active Substance: APIXABAN
  8. LUMAKRAS [Concomitant]
     Active Substance: SOTORASIB
     Dosage: 320 MG TABLET
  9. TOPROL XL [Concomitant]
     Active Substance: METOPROLOL SUCCINATE
     Dosage: 50 MG TABLET
  10. XELODA [Concomitant]
     Active Substance: CAPECITABINE
     Dosage: 500 MG TABLET
  11. METOPROLOL SUCCINATE [Concomitant]
     Active Substance: METOPROLOL SUCCINATE
     Indication: Atrial fibrillation
     Route: 048
  12. METHIMAZOLE [Concomitant]
     Active Substance: METHIMAZOLE
     Indication: Hyperthyroidism
     Dosage: 2.5 MG
     Route: 048

REACTIONS (17)
  - Arthralgia [Not Recovered/Not Resolved]
  - Upper-airway cough syndrome [Recovered/Resolved]
  - Bladder disorder [Not Recovered/Not Resolved]
  - Intentional dose omission [Not Recovered/Not Resolved]
  - Rash [Unknown]
  - Headache [Unknown]
  - Drug intolerance [Unknown]
  - Nasopharyngitis [Not Recovered/Not Resolved]
  - Neoplasm progression [Not Recovered/Not Resolved]
  - Vitamin D deficiency [Not Recovered/Not Resolved]
  - Fatigue [Not Recovered/Not Resolved]
  - Nausea [Not Recovered/Not Resolved]
  - Vomiting [Unknown]
  - Nausea [Recovered/Resolved]
  - Asthenia [Recovered/Resolved]
  - Decreased appetite [Recovered/Resolved]
  - Off label use [Unknown]

NARRATIVE: CASE EVENT DATE: 20230814
